FAERS Safety Report 16272157 (Version 2)
Quarter: 2019Q2

REPORT INFORMATION
  Report Type: Report from Study
  Country: FR (occurrence: FR)
  Receive Date: 20190506
  Receipt Date: 20190627
  Transmission Date: 20190711
  Serious: Yes (Life-Threatening, Hospitalization)
  Sender: FDA-Public Use
  Company Number: FR-ROCHE-2310733

PATIENT
  Age: 41 Year
  Sex: Female

DRUGS (5)
  1. SEROPLEX [Concomitant]
     Active Substance: ESCITALOPRAM OXALATE
     Indication: DEPRESSION
     Route: 048
  2. OCRELIZUMAB. [Suspect]
     Active Substance: OCRELIZUMAB
     Indication: RELAPSING MULTIPLE SCLEROSIS
     Dosage: INITIAL DOSE OF TWO 300 MG INFUSIONS OF OCRELIZUMAB EACH SEPARATED BY 14 DAYS FOLLOWED BY ONE SINGLE
     Route: 042
  3. OCRELIZUMAB. [Suspect]
     Active Substance: OCRELIZUMAB
     Dosage: MOST RECENT DOSE RECEIVED ON 23/APR/2019
     Route: 042
  4. NOCTAMIDE [Concomitant]
     Active Substance: LORMETAZEPAM
     Indication: INSOMNIA
     Route: 048
  5. MIRENA [Concomitant]
     Active Substance: LEVONORGESTREL
     Route: 061
     Dates: start: 20170424

REACTIONS (1)
  - Toxicity to various agents [Unknown]

NARRATIVE: CASE EVENT DATE: 20190427
